FAERS Safety Report 9229599 (Version 1)
Quarter: 2013Q2

REPORT INFORMATION
  Report Type: Spontaneous
  Country: US (occurrence: US)
  Receive Date: 20130414
  Receipt Date: 20130414
  Transmission Date: 20140414
  Serious: Yes (Hospitalization)
  Sender: FDA-Public Use
  Company Number: US-UCBSA-082709

PATIENT
  Age: 72 Year
  Sex: Female

DRUGS (4)
  1. CIMZIA [Suspect]
     Indication: CROHN^S DISEASE
     Dates: start: 201209, end: 20130402
  2. NORVASC [Concomitant]
     Indication: HYPERTENSION
     Dosage: DAILY DOSE: 5MG
  3. MAXIDE [Concomitant]
     Indication: HYPERTENSION
     Dosage: DAILY DOSE: 25MG
  4. LEVOXYL [Concomitant]
     Indication: THYROID DISORDER
     Dosage: DAILY DOSE: 25MCG

REACTIONS (7)
  - Fatigue [Unknown]
  - Nausea [Unknown]
  - Vomiting [Unknown]
  - Decreased appetite [Unknown]
  - Diarrhoea [Unknown]
  - Weight decreased [Unknown]
  - Abdominal pain [Unknown]
